FAERS Safety Report 6495757-2 (Version None)
Quarter: 2009Q4

REPORT INFORMATION
  Report Type: 
  Country: None (occurrence: None)
  Receive Date: 20091214
  Receipt Date: 20090810
  Transmission Date: 20100525
  Serious: Yes (Hospitalization)
  Sender: FDA-Public Use
  Company Number: US-BRISTOL-MYERS SQUIBB COMPANY-14734552

PATIENT
  Age: 59 Year
  Sex: Male

DRUGS (10)
  1. ABILIFY [Suspect]
     Indication: DELIRIUM
     Route: 030
  2. HYDROCHLOROTHIAZIDE [Concomitant]
  3. ROCEPHIN [Concomitant]
  4. DOXYCYCLINE [Concomitant]
  5. ATIVAN [Concomitant]
  6. DIPRIVAN [Concomitant]
  7. PRECEDEX [Concomitant]
  8. WELLBUTRIN [Concomitant]
  9. NAMENDA [Concomitant]
  10. ZYPREXA [Concomitant]

REACTIONS (1)
  - RASH [None]
